FAERS Safety Report 25731221 (Version 1)
Quarter: 2025Q3

REPORT INFORMATION
  Report Type: Spontaneous
  Country: CN (occurrence: CN)
  Receive Date: 20250827
  Receipt Date: 20250827
  Transmission Date: 20251021
  Serious: Yes (Hospitalization)
  Sender: ELI LILLY AND COMPANY
  Company Number: CN-Merck Healthcare KGaA-2025042512

PATIENT
  Age: 60 Year
  Sex: Male
  Weight: 52 kg

DRUGS (3)
  1. ERBITUX [Suspect]
     Active Substance: CETUXIMAB
     Indication: Laryngeal cancer
     Route: 041
     Dates: start: 20250721, end: 20250721
  2. PACLITAXEL [Suspect]
     Active Substance: PACLITAXEL
     Indication: Laryngeal cancer
     Dosage: 90 MG, DAILY
     Route: 041
     Dates: start: 20250721, end: 20250721
  3. SINTILIMAB [Suspect]
     Active Substance: SINTILIMAB
     Indication: Laryngeal cancer
     Dosage: 200 MG, DAILY
     Route: 041
     Dates: start: 20250721, end: 20250721

REACTIONS (1)
  - Neutrophil count decreased [Recovering/Resolving]

NARRATIVE: CASE EVENT DATE: 20250805
